FAERS Safety Report 8344866-1 (Version None)
Quarter: 2012Q2

REPORT INFORMATION
  Report Type: 
  Country: None (occurrence: None)
  Receive Date: 20120508
  Receipt Date: 20120501
  Transmission Date: 20120825
  Serious: Yes (Hospitalization)
  Sender: FDA-Public Use
  Company Number: US-GLAXOSMITHKLINE-B0728904A

PATIENT
  Sex: Female

DRUGS (2)
  1. AVANDAMET [Suspect]
     Indication: DIABETES MELLITUS
     Route: 048
  2. AVANDIA [Suspect]
     Indication: DIABETES MELLITUS
     Dosage: 8MG PER DAY
     Route: 048
     Dates: start: 20060501, end: 20070801

REACTIONS (4)
  - CORONARY ARTERY DISEASE [None]
  - CARDIOVASCULAR DISORDER [None]
  - HAEMORRHAGE INTRACRANIAL [None]
  - CEREBROVASCULAR ACCIDENT [None]
